FAERS Safety Report 13778420 (Version 2)
Quarter: 2017Q4

REPORT INFORMATION
  Report Type: Spontaneous
  Country: US (occurrence: US)
  Receive Date: 20170721
  Receipt Date: 20171011
  Transmission Date: 20180320
  Serious: Yes (Hospitalization)
  Sender: FDA-Public Use
  Company Number: US-TEVA-788574USA

PATIENT
  Sex: Female

DRUGS (1)
  1. PERMETHRIN. [Suspect]
     Active Substance: PERMETHRIN
     Indication: ACARODERMATITIS

REACTIONS (7)
  - Acrochordon [Unknown]
  - Infection [Unknown]
  - Application site burn [Unknown]
  - Condition aggravated [Unknown]
  - Scar [Unknown]
  - Skin disorder [Unknown]
  - Oedema [Unknown]
